FAERS Safety Report 18705616 (Version 1)
Quarter: 2021Q1

REPORT INFORMATION
  Report Type: Spontaneous
  Country: US (occurrence: US)
  Receive Date: 20210105
  Receipt Date: 20210105
  Transmission Date: 20210419
  Serious: Yes (Life-Threatening)
  Sender: FDA-Public Use
  Company Number: None

PATIENT
  Age: 61 Year
  Sex: Female
  Weight: 77.7 kg

DRUGS (1)
  1. VEKLURY [Suspect]
     Active Substance: REMDESIVIR
     Indication: COVID-19
     Route: 042

REACTIONS (4)
  - International normalised ratio increased [None]
  - Prothrombin time prolonged [None]
  - Blood creatinine increased [None]
  - Acute hepatic failure [None]

NARRATIVE: CASE EVENT DATE: 20210104
